FAERS Safety Report 4394095-1 (Version None)
Quarter: 2004Q3

REPORT INFORMATION
  Report Type: 
  Country: None (occurrence: None)
  Receive Date: 20040701
  Receipt Date: 20040701
  Transmission Date: 20050211
  Serious: Yes (Death)
  Sender: FDA-Public Use
  Company Number: None

PATIENT
  Age: 15 Day
  Sex: Female
  Weight: 0.62 kg

DRUGS (14)
  1. IBUPROFEN LYSINE (10MG/ML ) COURSE #1 [Suspect]
     Indication: PATENT DUCTUS ARTERIOSUS
     Dosage: 6.6 MG IV X 1, 3.3 MG IV X 2
     Route: 042
     Dates: start: 20040528
  2. IBUPROFEN LYSINE (10MG/ML ) COURSE #1 [Suspect]
     Indication: PATENT DUCTUS ARTERIOSUS
     Dosage: 6.6 MG IV X 1, 3.3 MG IV X 2
     Route: 042
     Dates: start: 20040529
  3. IBUPROFEN LYSINE (10MG/ML ) COURSE #1 [Suspect]
     Indication: PATENT DUCTUS ARTERIOSUS
     Dosage: 6.6 MG IV X 1, 3.3 MG IV X 2
     Route: 042
     Dates: start: 20040530
  4. IBUPROFEN LYSINE (10MG/ML) COURSE #2 [Suspect]
     Indication: PATENT DUCTUS ARTERIOSUS
     Dosage: 6.6 MG IV X 1, 3.3. MG IV X 2
     Route: 042
     Dates: start: 20040531
  5. IBUPROFEN LYSINE (10MG/ML) COURSE #2 [Suspect]
     Indication: PATENT DUCTUS ARTERIOSUS
     Dosage: 6.6 MG IV X 1, 3.3. MG IV X 2
     Route: 042
     Dates: start: 20040601
  6. IBUPROFEN LYSINE (10MG/ML) COURSE #2 [Suspect]
     Indication: PATENT DUCTUS ARTERIOSUS
     Dosage: 6.6 MG IV X 1, 3.3. MG IV X 2
     Route: 042
     Dates: start: 20040602
  7. MEROPENEM [Concomitant]
  8. VERSED [Concomitant]
  9. MORPHINE [Concomitant]
  10. PHENOBARBITAL TAB [Concomitant]
  11. SODIUM BICARBONATE [Concomitant]
  12. DECADRON [Concomitant]
  13. INFASURF [Concomitant]
  14. BACITRACIN [Concomitant]

REACTIONS (3)
  - DRUG INEFFECTIVE [None]
  - NEONATAL DISORDER [None]
  - PULMONARY INTERSTITIAL EMPHYSEMA SYNDROME [None]
